FAERS Safety Report 12776776 (Version 1)
Quarter: 2016Q3

REPORT INFORMATION
  Report Type: Spontaneous
  Country: GB (occurrence: GB)
  Receive Date: 20160923
  Receipt Date: 20160923
  Transmission Date: 20161109
  Serious: Yes (Life-Threatening, Hospitalization, Other)
  Sender: FDA-Public Use
  Company Number: GB-TEVA-693744ACC

PATIENT
  Age: 50 Year
  Sex: Male

DRUGS (5)
  1. HEPARIN SODIUM. [Suspect]
     Active Substance: HEPARIN SODIUM
     Indication: PRODUCT USED FOR UNKNOWN INDICATION
  2. DIAZEPAM. [Suspect]
     Active Substance: DIAZEPAM
     Indication: PRODUCT USED FOR UNKNOWN INDICATION
  3. APIXABAN [Suspect]
     Active Substance: APIXABAN
     Indication: PRODUCT USED FOR UNKNOWN INDICATION
  4. HEPARIN SODIUM. [Suspect]
     Active Substance: HEPARIN SODIUM
     Indication: PRODUCT USED FOR UNKNOWN INDICATION
     Route: 058
     Dates: start: 20160512, end: 201607
  5. BISOPROLOL [Suspect]
     Active Substance: BISOPROLOL
     Indication: PRODUCT USED FOR UNKNOWN INDICATION

REACTIONS (28)
  - Monoplegia [Unknown]
  - Back pain [Unknown]
  - Septic rash [Unknown]
  - Haemoptysis [Unknown]
  - Delusional disorder, unspecified type [Unknown]
  - Hepatic failure [Unknown]
  - Cardiac failure [Unknown]
  - Jaundice [Unknown]
  - Heart rate abnormal [Unknown]
  - Complication associated with device [Unknown]
  - Muscle haemorrhage [Recovered/Resolved]
  - Sensory disturbance [Unknown]
  - Septic shock [Unknown]
  - Malaise [Unknown]
  - Malaise [Unknown]
  - Productive cough [Unknown]
  - Feeding disorder [Unknown]
  - Renal failure [Unknown]
  - Thrombocytopenia [Unknown]
  - Insomnia [Unknown]
  - Discomfort [Not Recovered/Not Resolved]
  - Monoplegia [Unknown]
  - Neuropathy peripheral [Unknown]
  - Protein total decreased [Unknown]
  - Atrial fibrillation [Unknown]
  - Pyrexia [Unknown]
  - Asthenia [Unknown]
  - Poor peripheral circulation [Unknown]

NARRATIVE: CASE EVENT DATE: 20160513
